FAERS Safety Report 4412154-1 (Version None)
Quarter: 2004Q2

REPORT INFORMATION
  Report Type: 
  Country: None (occurrence: None)
  Receive Date: 20040630
  Receipt Date: 20040419
  Transmission Date: 20050107
  Serious: No
  Sender: FDA-Public Use
  Company Number: 04P-163-0257923-00

PATIENT
  Age: 75 Year
  Sex: Female
  Weight: 77.1115 kg

DRUGS (8)
  1. HUMIRA [Suspect]
     Indication: RHEUMATOID ARTHRITIS
     Dosage: 40 MG, 1 IN 2 WK, SUBCUTANEOUS
     Route: 058
     Dates: start: 20040101
  2. PREDNISONE [Concomitant]
  3. TAMOXIFEN CITRATE [Concomitant]
  4. MULTI-VITAMINS [Concomitant]
  5. DYAZIDE [Concomitant]
  6. CITALOPRAM HYDROBROMIDE [Concomitant]
  7. ZOLPIDEM TARTRATE [Concomitant]
  8. GABAPENTIN [Concomitant]

REACTIONS (1)
  - MUSCULOSKELETAL DISCOMFORT [None]
